FAERS Safety Report 13818681 (Version 2)
Quarter: 2017Q3

REPORT INFORMATION
  Report Type: Spontaneous
  Country: US (occurrence: US)
  Receive Date: 20170801
  Receipt Date: 20170926
  Transmission Date: 20171127
  Serious: Yes (Other)
  Sender: FDA-Public Use
  Company Number: US-JNJFOC-20170727073

PATIENT
  Sex: Male

DRUGS (1)
  1. ZYTIGA [Suspect]
     Active Substance: ABIRATERONE ACETATE
     Indication: PRODUCT USED FOR UNKNOWN INDICATION
     Route: 048

REACTIONS (8)
  - Mental impairment [Unknown]
  - Suicidal ideation [Unknown]
  - Diplopia [Unknown]
  - Crying [Unknown]
  - Feeling abnormal [Unknown]
  - Homicidal ideation [Unknown]
  - Drug abuse [Unknown]
  - Anger [Unknown]
